FAERS Safety Report 7909671-6 (Version None)
Quarter: 2011Q4

REPORT INFORMATION
  Report Type: 
  Country: None (occurrence: None)
  Receive Date: 20111111
  Receipt Date: 20111102
  Transmission Date: 20120403
  Serious: Yes (Hospitalization)
  Sender: FDA-Public Use
  Company Number: US-GLAXOSMITHKLINE-B0736561A

PATIENT
  Sex: Male
  Weight: 126.4 kg

DRUGS (6)
  1. ACCUPRIL [Concomitant]
  2. FOLTX [Concomitant]
  3. LIPITOR [Concomitant]
  4. PRILOSEC [Concomitant]
  5. AVANDIA [Suspect]
     Indication: TYPE 2 DIABETES MELLITUS
     Dosage: 12MGD TWICE PER DAY
     Route: 048
     Dates: start: 20000301, end: 20060401
  6. TRICOR [Concomitant]

REACTIONS (5)
  - IMPLANTABLE DEFIBRILLATOR INSERTION [None]
  - CARDIOVASCULAR DISORDER [None]
  - CORONARY ARTERY DISEASE [None]
  - ISCHAEMIC CARDIOMYOPATHY [None]
  - CARDIAC FAILURE CONGESTIVE [None]
